FAERS Safety Report 6986495-8 (Version None)
Quarter: 2010Q3

REPORT INFORMATION
  Report Type: 
  Country: None (occurrence: None)
  Receive Date: 20100913
  Receipt Date: 20100827
  Transmission Date: 20110219
  Serious: Yes (Death, Hospitalization)
  Sender: FDA-Public Use
  Company Number: 2009001143

PATIENT
  Age: 62 Year
  Sex: Female
  Weight: 55 kg

DRUGS (8)
  1. ERLOTINIB HYDROCHLORIDE [Suspect]
     Indication: NON-SMALL CELL LUNG CANCER
     Dosage: (150 MG,QD), ORAL
     Route: 047
     Dates: start: 20080925, end: 20081010
  2. PLACEBO (PLACEBO) [Suspect]
     Indication: NON-SMALL CELL LUNG CANCER
     Dosage: (37.5 MG), ORAL
     Route: 048
     Dates: start: 20080925, end: 20081010
  3. TRANSTEC TTS (BUPRENORPHINE) [Concomitant]
  4. OMEPRAZOLE [Concomitant]
  5. DEXAMETHASONE [Concomitant]
  6. PHENYTOIN (PHENYTOXN) [Concomitant]
  7. CELECOXIB [Concomitant]
  8. SPIRONOLACTONE [Concomitant]

REACTIONS (12)
  - BACK PAIN [None]
  - BLOOD PRESSURE DIASTOLIC DECREASED [None]
  - DEHYDRATION [None]
  - DEPRESSED LEVEL OF CONSCIOUSNESS [None]
  - ENCEPHALOPATHY [None]
  - NAUSEA [None]
  - PARALYSIS [None]
  - PERIPHERAL MOTOR NEUROPATHY [None]
  - PROTHROMBIN LEVEL DECREASED [None]
  - PROTHROMBIN TIME PROLONGED [None]
  - SUBDURAL HAEMORRHAGE [None]
  - VOMITING [None]
